FAERS Safety Report 8233326-4 (Version None)
Quarter: 2012Q1

REPORT INFORMATION
  Report Type: 
  Country: None (occurrence: None)
  Receive Date: 20120326
  Receipt Date: 20120316
  Transmission Date: 20120608
  Serious: Yes (Hospitalization)
  Sender: FDA-Public Use
  Company Number: US-BAYER-2011-060951

PATIENT
  Age: 26 Year
  Sex: Female
  Weight: 90.703 kg

DRUGS (6)
  1. NORCO [Concomitant]
  2. TYLENOL [Concomitant]
  3. OMEPRAZOLE [Concomitant]
     Indication: DYSPEPSIA
     Dosage: 2 MG, UNK
  4. DROSPIRENONE AND ETHINYL ESTRADIOL [Suspect]
     Indication: CONTRACEPTION
     Dosage: UNK
     Dates: start: 20090327, end: 20090714
  5. OMEPRAZOLE [Concomitant]
     Indication: VITAMIN SUPPLEMENTATION
  6. OXYCODONE HCL [Concomitant]

REACTIONS (11)
  - DEEP VEIN THROMBOSIS [None]
  - PULMONARY INFARCTION [None]
  - LUNG DISORDER [None]
  - MOOD ALTERED [None]
  - ANXIETY [None]
  - PULMONARY EMBOLISM [None]
  - PAIN IN EXTREMITY [None]
  - EMOTIONAL DISTRESS [None]
  - ASTHENIA [None]
  - DEPRESSED MOOD [None]
  - FATIGUE [None]
